FAERS Safety Report 17658301 (Version 2)
Quarter: 2021Q1

REPORT INFORMATION
  Report Type: Spontaneous
  Country: CA (occurrence: CA)
  Receive Date: 20200412
  Receipt Date: 20210107
  Transmission Date: 20210419
  Serious: Yes (Other)
  Sender: FDA-Public Use
  Company Number: CA-SAMSUNG BIOEPIS-SB-2020-12003

PATIENT
  Age: 25 Year
  Sex: Male
  Weight: 57 kg

DRUGS (11)
  1. INFLIXIMAB [Suspect]
     Active Substance: INFLIXIMAB
     Indication: COLITIS ULCERATIVE
     Route: 042
  2. AZATHIOPRINE. [Concomitant]
     Active Substance: AZATHIOPRINE
     Indication: PRODUCT USED FOR UNKNOWN INDICATION
     Route: 048
  3. ACETAMINOPHEN. [Concomitant]
     Active Substance: ACETAMINOPHEN
     Indication: PREMEDICATION
     Route: 065
  4. AZATHIOPRINE. [Concomitant]
     Active Substance: AZATHIOPRINE
     Route: 048
  5. MEZAVANT [Concomitant]
     Active Substance: MESALAMINE
     Route: 048
  6. IRON [Concomitant]
     Active Substance: IRON
     Indication: MINERAL SUPPLEMENTATION
     Dosage: UNKNOWN
     Route: 048
  7. MEZAVANT [Concomitant]
     Active Substance: MESALAMINE
     Route: 048
  8. IRON SULPHATE [Concomitant]
     Active Substance: FERROUS SULFATE ANHYDROUS
     Indication: SUPPLEMENTATION THERAPY
     Dosage: UNKNOWN
     Route: 048
  9. MEZAVANT [Concomitant]
     Active Substance: MESALAMINE
     Indication: PRODUCT USED FOR UNKNOWN INDICATION
     Dosage: DELAYED AND EXTENDED RELEASE TABLET
     Route: 048
  10. MEZAVANT [Concomitant]
     Active Substance: MESALAMINE
     Route: 048
  11. PARA?AMINOSALICYLIC ACID [Concomitant]
     Active Substance: AMINOSALICYLIC ACID
     Indication: PRODUCT USED FOR UNKNOWN INDICATION
     Route: 054

REACTIONS (12)
  - Gastrointestinal inflammation [Recovered/Resolved]
  - Off label use [Recovered/Resolved]
  - Therapeutic product effect incomplete [Recovered/Resolved]
  - Condition aggravated [Recovered/Resolved]
  - Weight decreased [Recovered/Resolved]
  - Drug level above therapeutic [Recovered/Resolved]
  - Faecal calprotectin increased [Recovered/Resolved]
  - Product administration error [Recovered/Resolved]
  - Heart rate irregular [Recovered/Resolved]
  - Rectal haemorrhage [Recovered/Resolved]
  - Inappropriate schedule of product administration [Recovered/Resolved]
  - Product use issue [Recovered/Resolved]
